FAERS Safety Report 7283257-1 (Version None)
Quarter: 2011Q1

REPORT INFORMATION
  Report Type: 
  Country: None (occurrence: None)
  Receive Date: 20110209
  Receipt Date: 20110202
  Transmission Date: 20110831
  Serious: Yes (Death, Other)
  Sender: FDA-Public Use
  Company Number: PHHY2010DE81998

PATIENT
  Sex: Female
  Weight: 62 kg

DRUGS (3)
  1. TAMOXIFEN CITRATE [Concomitant]
     Dosage: 20 MG, UNK
     Dates: start: 19990801, end: 20050201
  2. FEMARA [Suspect]
     Dosage: 2.5 MG,
     Route: 048
     Dates: start: 20050101, end: 20070801
  3. ZOMETA [Suspect]
     Indication: METASTASES TO BONE
     Dosage: 4 MG, EVERY 4 WEEKS
     Dates: start: 20050127, end: 20070509

REACTIONS (6)
  - NEOPLASM MALIGNANT [None]
  - BONE SWELLING [None]
  - OSTEONECROSIS OF JAW [None]
  - BONE DENSITY DECREASED [None]
  - METASTASES TO BONE [None]
  - ERYTHEMA [None]
